FAERS Safety Report 9409286 (Version 1)
Quarter: 2013Q3

REPORT INFORMATION
  Report Type: Spontaneous
  Country: US (occurrence: US)
  Receive Date: 20130719
  Receipt Date: 20130719
  Transmission Date: 20140515
  Serious: No
  Sender: FDA-Public Use
  Company Number: US-PFIZER INC-2013207988

PATIENT
  Age: 69 Year
  Sex: Male
  Weight: 68.93 kg

DRUGS (5)
  1. VIAGRA [Suspect]
     Indication: ERECTILE DYSFUNCTION
     Dosage: 25 MG, AS NEEDED
     Dates: start: 2007
  2. VIAGRA [Suspect]
     Dosage: 50 MG, AS NEEDED
     Dates: start: 2011
  3. COMBIGAN [Concomitant]
     Indication: GLAUCOMA
     Dosage: 1 GTT, 2X/DAY
  4. BYSTOLIC [Concomitant]
     Indication: BLOOD PRESSURE ABNORMAL
     Dosage: 10 MG, 1X/DAY
  5. LISINOPRIL [Concomitant]
     Indication: BLOOD PRESSURE ABNORMAL
     Dosage: 10 MG, UNK

REACTIONS (3)
  - Ocular hyperaemia [Recovered/Resolved]
  - Headache [Recovered/Resolved]
  - Drug ineffective [Unknown]
